FAERS Safety Report 18907468 (Version 1)
Quarter: 2021Q1

REPORT INFORMATION
  Report Type: Spontaneous
  Country: US (occurrence: US)
  Receive Date: 20210217
  Receipt Date: 20210217
  Transmission Date: 20210420
  Serious: No
  Sender: FDA-Public Use
  Company Number: US-ELI_LILLY_AND_COMPANY-US202101010167

PATIENT
  Sex: Female

DRUGS (2)
  1. INSULIN LISPRO [Suspect]
     Active Substance: INSULIN LISPRO
     Indication: GESTATIONAL DIABETES
     Dosage: 45 U, UNKNOWN
     Route: 058
     Dates: start: 202010
  2. INSULIN LISPRO [Suspect]
     Active Substance: INSULIN LISPRO
     Dosage: 5 U, UNKNOWN
     Route: 058
     Dates: start: 202010

REACTIONS (2)
  - Injection site pain [Recovering/Resolving]
  - Maternal exposure during pregnancy [Not Recovered/Not Resolved]
